FAERS Safety Report 14761689 (Version 1)
Quarter: 2018Q2

REPORT INFORMATION
  Report Type: Spontaneous
  Country: GB (occurrence: GB)
  Receive Date: 20180416
  Receipt Date: 20180416
  Transmission Date: 20180711
  Serious: Yes (Other)
  Sender: FDA-Public Use
  Company Number: GB-CONCORDIA PHARMACEUTICALS INC.-E2B_00011082

PATIENT
  Sex: Female

DRUGS (6)
  1. MYCOPHENOLATE [Suspect]
     Active Substance: MYCOPHENOLIC ACID
     Indication: ARTHRITIS
  2. MYCOPHENOLATE [Suspect]
     Active Substance: MYCOPHENOLIC ACID
     Indication: GASTROINTESTINAL INFLAMMATION
     Route: 065
  3. PREDNISOLONE. [Suspect]
     Active Substance: PREDNISOLONE
     Indication: IMMUNODEFICIENCY COMMON VARIABLE
  4. PREDNISOLONE. [Suspect]
     Active Substance: PREDNISOLONE
     Indication: ARTHRITIS
  5. PREDNISOLONE. [Suspect]
     Active Substance: PREDNISOLONE
     Indication: GASTROINTESTINAL INFLAMMATION
     Dosage: (LOW DOSE)
     Route: 065
  6. MYCOPHENOLATE [Suspect]
     Active Substance: MYCOPHENOLIC ACID
     Indication: IMMUNODEFICIENCY COMMON VARIABLE

REACTIONS (2)
  - Cytomegalovirus infection [Unknown]
  - Gastric ulcer [Unknown]
